FAERS Safety Report 25340297 (Version 1)
Quarter: 2025Q2

REPORT INFORMATION
  Report Type: Spontaneous
  Country: US (occurrence: None)
  Receive Date: 20250521
  Receipt Date: 20250521
  Transmission Date: 20250717
  Serious: No
  Sender: SUPERNUS PHARMACEUTICALS, INC.
  Company Number: US-SUPERNUS Pharmaceuticals, Inc.-SUP202502-000688

PATIENT
  Age: 33 Year
  Sex: Male

DRUGS (9)
  1. QELBREE [Suspect]
     Active Substance: VILOXAZINE HYDROCHLORIDE
     Indication: Attention deficit hyperactivity disorder
     Dosage: 200 MG TAB ONCE DAILY FOR A WEEK AS PER THE STARTER PACK AND THEN GO UP TO 2 TABS I.E., 400MG DAILY
     Route: 048
     Dates: start: 202305
  2. QELBREE [Suspect]
     Active Substance: VILOXAZINE HYDROCHLORIDE
     Route: 048
     Dates: start: 2023
  3. QUETIAPINE [Concomitant]
     Active Substance: QUETIAPINE
  4. MEDROL [Concomitant]
     Active Substance: METHYLPREDNISOLONE
  5. LEXAPRO [Concomitant]
     Active Substance: ESCITALOPRAM OXALATE
  6. LORAZEPAM [Concomitant]
     Active Substance: LORAZEPAM
  7. HYDROCHLOROTHIAZIDE\VALSARTAN [Concomitant]
     Active Substance: HYDROCHLOROTHIAZIDE\VALSARTAN
  8. AMLODIPINE [Concomitant]
     Active Substance: AMLODIPINE BESYLATE
  9. METHOCARBAMOL [Concomitant]
     Active Substance: METHOCARBAMOL

REACTIONS (2)
  - Anger [Not Recovered/Not Resolved]
  - Anxiety [Not Recovered/Not Resolved]
